FAERS Safety Report 20964009 (Version 1)
Quarter: 2022Q2

REPORT INFORMATION
  Report Type: Spontaneous
  Country: TW (occurrence: TW)
  Receive Date: 20220615
  Receipt Date: 20220615
  Transmission Date: 20220720
  Serious: Yes (Other)
  Sender: FDA-Public Use
  Company Number: TW-MLMSERVICE-20180816-1338641-1

PATIENT
  Age: 87 Year
  Sex: Female
  Weight: 68.5 kg

DRUGS (18)
  1. PROPOFOL [Interacting]
     Active Substance: PROPOFOL
     Indication: General anaesthesia
     Route: 042
  2. SUPRANE [Interacting]
     Active Substance: DESFLURANE
     Indication: Maintenance of anaesthesia
     Dosage: 6 %
     Route: 065
  3. SEVOFLURANE [Interacting]
     Active Substance: SEVOFLURANE
     Indication: Maintenance of anaesthesia
     Route: 065
  4. LIDOCAINE [Interacting]
     Active Substance: LIDOCAINE
     Indication: General anaesthesia
     Dosage: 50 MG
     Route: 042
  5. ESCITALOPRAM [Suspect]
     Active Substance: ESCITALOPRAM OXALATE
     Indication: Panic disorder
     Route: 065
  6. ESCITALOPRAM [Suspect]
     Active Substance: ESCITALOPRAM OXALATE
     Indication: Major depression
  7. IMIPRAMINE [Interacting]
     Active Substance: IMIPRAMINE
     Indication: Panic disorder
     Dosage: HS, LONG TERM TREATMENT
     Route: 065
  8. IMIPRAMINE [Interacting]
     Active Substance: IMIPRAMINE
     Indication: Major depression
  9. ALPRAZOLAM [Interacting]
     Active Substance: ALPRAZOLAM
     Indication: Major depression
     Dosage: 0.5 MG, BID
     Route: 065
  10. ALPRAZOLAM [Interacting]
     Active Substance: ALPRAZOLAM
     Indication: Panic disorder
  11. ESTAZOLAM [Interacting]
     Active Substance: ESTAZOLAM
     Indication: Major depression
     Route: 065
  12. ESTAZOLAM [Interacting]
     Active Substance: ESTAZOLAM
     Indication: Panic disorder
  13. SEROQUEL [Interacting]
     Active Substance: QUETIAPINE FUMARATE
     Indication: Major depression
     Dosage: HS, 1 DAY
     Route: 065
  14. SEROQUEL [Interacting]
     Active Substance: QUETIAPINE FUMARATE
     Indication: Panic disorder
  15. FENTANYL [Interacting]
     Active Substance: FENTANYL
     Indication: General anaesthesia
     Route: 042
  16. CISATRACURIUM [Interacting]
     Active Substance: CISATRACURIUM
     Indication: Endotracheal intubation
     Route: 042
  17. PROPRANOLOL [Concomitant]
     Active Substance: PROPRANOLOL HYDROCHLORIDE
     Indication: Hypertension
     Dosage: HYPERTENSION WAS UNDER CONTROL WITH PROPRANOLOL 10 MG BID TREATMENT FOR 10 YEARS
     Route: 065
  18. OXYGEN [Suspect]
     Active Substance: OXYGEN
     Indication: Anaesthesia
     Dosage: 0.5
     Route: 065

REACTIONS (4)
  - Bradycardia [Recovered/Resolved]
  - Electrocardiogram QT prolonged [Recovered/Resolved]
  - Procedural hypotension [Recovered/Resolved]
  - Drug interaction [Recovered/Resolved]
